FAERS Safety Report 6282363-8 (Version None)
Quarter: 2009Q3

REPORT INFORMATION
  Report Type: 
  Country: None (occurrence: None)
  Receive Date: 20090724
  Receipt Date: 20090722
  Transmission Date: 20100115
  Serious: Yes (Death)
  Sender: FDA-Public Use
  Company Number: CA-B.I. PHARMACEUTICALS,INC./RIDGEFIELD-2009-CN-00510CN

PATIENT
  Sex: Female

DRUGS (4)
  1. CATAPRES [Suspect]
     Indication: ANALGESIA
     Dosage: 15 MCG
     Route: 037
     Dates: start: 20090607, end: 20090713
  2. HYDROMORPHONE HCL [Concomitant]
     Indication: ANALGESIA
     Dosage: 100 MG
     Route: 058
     Dates: end: 20090713
  3. INTRATHECAL MORPHINE [Concomitant]
     Indication: ANALGESIA
     Dosage: 10 MG
     Route: 037
     Dates: start: 20090607, end: 20090713
  4. INTRATHECAL BUPIVACAINE [Concomitant]
     Indication: ANALGESIA
     Dosage: 20 MG
     Route: 037
     Dates: start: 20090607, end: 20090713

REACTIONS (1)
  - PNEUMONIA [None]
